FAERS Safety Report 24048039 (Version 1)
Quarter: 2024Q3

REPORT INFORMATION
  Report Type: Report from Study
  Country: US (occurrence: US)
  Receive Date: 20240703
  Receipt Date: 20240703
  Transmission Date: 20241017
  Serious: Yes (Other)
  Sender: NOVARTIS
  Company Number: US-002147023-NVSC2024US127846

PATIENT
  Sex: Male

DRUGS (1)
  1. LUTATHERA [Suspect]
     Active Substance: LUTETIUM OXODOTREOTIDE LU-177
     Indication: Product used for unknown indication
     Dosage: HALF A DOSE
     Route: 065

REACTIONS (8)
  - Tumour flare [Unknown]
  - Intestinal obstruction [Unknown]
  - Incorrect dose administered [Unknown]
  - Product contamination [Unknown]
  - Inappropriate schedule of product administration [Unknown]
  - Product supply issue [Unknown]
  - Pain [Unknown]
  - Muscle spasms [Unknown]
